FAERS Safety Report 9612781 (Version 1)
Quarter: 2013Q4

REPORT INFORMATION
  Report Type: Spontaneous
  Country: DE (occurrence: DE)
  Receive Date: 20131010
  Receipt Date: 20131010
  Transmission Date: 20140711
  Serious: Yes (Congenital Anomaly)
  Sender: FDA-Public Use
  Company Number: GXKR2013DE003178

PATIENT
  Age: 7 Month
  Sex: Female
  Weight: 3.8 kg

DRUGS (4)
  1. LAMOTRIGINE [Suspect]
     Dosage: MATERNAL DOSE THROUGHOUT PREGNANCY: 350MG/DAY
     Route: 064
  2. VOMEX A [Suspect]
     Dosage: MATERNAL DOSE AND EXACT TIME OF INTAKE NOT KNOWN; ALSO ORAL
     Route: 064
  3. ZOFRAN [Suspect]
     Dosage: MATERNAL DOSE: UNKNOWN DOSE DURING FIRST TRIMESTER; EXACT TIME OF INTAKE UNKNOWN
     Route: 064
  4. ACIDO FOLICO [Concomitant]
     Indication: PROPHYLAXIS OF NEURAL TUBE DEFECT
     Dosage: MATERNAL DOSE: 5MG/DAY; THROUGHOUT PREGNANCY AND PRECONCEPTIONAL
     Route: 064

REACTIONS (3)
  - Tethered cord syndrome [Recovered/Resolved with Sequelae]
  - Haemangioma congenital [Unknown]
  - Foetal exposure during pregnancy [Unknown]
